FAERS Safety Report 4304713-1 (Version None)
Quarter: 2004Q1

REPORT INFORMATION
  Report Type: 
  Country: None (occurrence: None)
  Receive Date: 20040226
  Receipt Date: 20031120
  Transmission Date: 20041129
  Serious: No
  Sender: FDA-Public Use
  Company Number: US-GLAXOSMITHKLINE-A0440613A

PATIENT
  Age: 50 Year
  Sex: Female

DRUGS (7)
  1. WELLBUTRIN [Suspect]
     Dosage: 150MG PER DAY
     Route: 048
     Dates: start: 20031022, end: 20031024
  2. LEVOXYL [Concomitant]
  3. THYROID TAB [Concomitant]
  4. NEXIUM [Concomitant]
  5. BACTRIM [Concomitant]
  6. FLUMADINE [Concomitant]
  7. ALLEGRA [Concomitant]

REACTIONS (1)
  - TREMOR [None]
